FAERS Safety Report 18264884 (Version 3)
Quarter: 2021Q1

REPORT INFORMATION
  Report Type: Report from Study
  Country: None (occurrence: US)
  Receive Date: 20200915
  Receipt Date: 20210105
  Transmission Date: 20210419
  Serious: Yes (Hospitalization)
  Sender: FDA-Public Use
  Company Number: US-ABBVIE-20K-163-3563825-00

PATIENT
  Sex: Female

DRUGS (3)
  1. IMBRUVICA [Suspect]
     Active Substance: IBRUTINIB
     Route: 048
  2. IMBRUVICA [Suspect]
     Active Substance: IBRUTINIB
     Indication: CHRONIC LYMPHOCYTIC LEUKAEMIA
     Route: 048
     Dates: start: 20200409
  3. IMBRUVICA [Suspect]
     Active Substance: IBRUTINIB
     Route: 048
     Dates: start: 20200228

REACTIONS (6)
  - Blood pressure increased [Not Recovered/Not Resolved]
  - Splenomegaly [Unknown]
  - Red blood cell count increased [Unknown]
  - White blood cell count decreased [Unknown]
  - Dizziness [Not Recovered/Not Resolved]
  - Emotional disorder [Unknown]

NARRATIVE: CASE EVENT DATE: 2020
